FAERS Safety Report 4941231-1 (Version None)
Quarter: 2006Q1

REPORT INFORMATION
  Report Type: 
  Country: None (occurrence: None)
  Receive Date: 20060310
  Receipt Date: 20060310
  Transmission Date: 20060701
  Serious: Yes (Hospitalization, Other)
  Sender: FDA-Public Use
  Company Number: None

PATIENT
  Age: 45 Year
  Sex: Female
  Weight: 81.3 kg

DRUGS (4)
  1. IRINOTECAN HCL [Suspect]
     Indication: GLIOBLASTOMA MULTIFORME
     Dosage: 447 MG
     Dates: start: 20050926
  2. IRINOTECAN HCL [Suspect]
     Indication: GLIOBLASTOMA MULTIFORME
     Dosage: 447 MG
     Dates: start: 20060131
  3. TEMOZOLOMIDE [Suspect]
     Dosage: 1425 MG
     Dates: start: 20050717
  4. TEMOZOLOMIDE [Suspect]
     Dosage: 1425 MG
     Dates: start: 20060131

REACTIONS (6)
  - ABDOMINAL PAIN UPPER [None]
  - ABDOMINAL WALL DISORDER [None]
  - ANOREXIA [None]
  - NEUTROPHIL COUNT DECREASED [None]
  - SCAN ABDOMEN ABNORMAL [None]
  - TENDERNESS [None]
